FAERS Safety Report 10540747 (Version 3)
Quarter: 2015Q1

REPORT INFORMATION
  Report Type: Report from Study
  Country: ES (occurrence: ES)
  Receive Date: 20141024
  Receipt Date: 20150108
  Transmission Date: 20150720
  Serious: Yes (Hospitalization)
  Sender: FDA-Public Use
  Company Number: ES-BAYER-2014-151495

PATIENT
  Age: 88 Year
  Sex: Male
  Weight: 74.5 kg

DRUGS (14)
  1. CODEINE [Concomitant]
     Active Substance: CODEINE
     Dosage: 3 G / 24H
     Route: 048
  2. REGORAFENIB [Suspect]
     Active Substance: REGORAFENIB
     Indication: COLORECTAL CANCER METASTATIC
     Dosage: 160 MG 24H
     Route: 048
     Dates: start: 20140925, end: 20141001
  3. LYRICA [Concomitant]
     Active Substance: PREGABALIN
     Dosage: 75 MG 24H
     Route: 048
     Dates: start: 201304
  4. ALOPURINOL [Concomitant]
     Active Substance: ALLOPURINOL
     Indication: HYPERURICAEMIA
     Dosage: UNK
     Route: 048
     Dates: start: 200310
  5. OMEPRAZOL [Concomitant]
     Active Substance: OMEPRAZOLE
     Indication: PROPHYLAXIS
     Dosage: 20 MG 24H
     Route: 048
     Dates: start: 200310
  6. NOLOTIL [Concomitant]
     Active Substance: METAMIZOLE
     Dosage: 575 MG 24H
     Route: 048
     Dates: start: 201407
  7. EUTIROX [Concomitant]
     Active Substance: LEVOTHYROXINE SODIUM
     Indication: HYPOTHYROIDISM
     Dosage: 112 MCG 24H
     Route: 048
     Dates: start: 199110
  8. RIVOTRIL [Concomitant]
     Active Substance: CLONAZEPAM
     Indication: ANXIETY
     Dosage: 2.5 ML / 24H
     Route: 048
     Dates: start: 201303
  9. FUROSEMIDE. [Concomitant]
     Active Substance: FUROSEMIDE
     Indication: CARDIAC FAILURE
     Dosage: 60 MG 24H
     Route: 048
     Dates: start: 200909
  10. GEMFIBROZILO [Concomitant]
     Indication: DYSLIPIDAEMIA
     Dosage: 900 MG/24 H
     Route: 048
     Dates: start: 201110
  11. LOSARTAN [Concomitant]
     Active Substance: LOSARTAN
     Indication: HYPERTENSION
     Dosage: 50 MG 24H
     Route: 048
     Dates: start: 201101
  12. FENTANYL. [Concomitant]
     Active Substance: FENTANYL
     Dosage: 12 MCG 24H
     Route: 062
  13. DUODART [Concomitant]
     Active Substance: DUTASTERIDE\TAMSULOSIN
  14. AAS [Concomitant]
     Active Substance: ASPIRIN
     Dosage: 100 MG/24H
     Route: 048

REACTIONS (1)
  - Pancreatitis acute [Recovered/Resolved]

NARRATIVE: CASE EVENT DATE: 20141008
